FAERS Safety Report 18446016 (Version 6)
Quarter: 2022Q3

REPORT INFORMATION
  Report Type: Spontaneous
  Country: JP (occurrence: JP)
  Receive Date: 20201030
  Receipt Date: 20220905
  Transmission Date: 20221027
  Serious: Yes (Other)
  Sender: FDA-Public Use
  Company Number: JP-UCBSA-2020043658

PATIENT
  Age: 0 Year
  Sex: Female
  Weight: 2.15 kg

DRUGS (12)
  1. CERTOLIZUMAB PEGOL [Suspect]
     Active Substance: CERTOLIZUMAB PEGOL
     Indication: Impetigo herpetiformis
     Dosage: 400 MILLIGRAM, EV 2 WEEKS(QOW)
     Route: 064
     Dates: start: 20200129, end: 20200310
  2. PREDNISOLONE [Concomitant]
     Active Substance: PREDNISOLONE
     Indication: Impetigo herpetiformis
     Dosage: 20 MILLIGRAM EVERY 12 HR
     Route: 064
     Dates: start: 20200127, end: 20200207
  3. PREDNISOLONE [Concomitant]
     Active Substance: PREDNISOLONE
     Dosage: 10 MILLIGRAM PER DAY
     Route: 064
  4. CYCLOSPORINE [Concomitant]
     Active Substance: CYCLOSPORINE
     Indication: Impetigo herpetiformis
     Dosage: 200 MILLIGRAM PER DAY
     Route: 064
  5. CYCLOSPORINE [Concomitant]
     Active Substance: CYCLOSPORINE
     Dosage: 150 MILLIGRAM PER DAY
  6. VITAMIN D3 [Concomitant]
     Active Substance: CHOLECALCIFEROL
     Indication: Pustular psoriasis
     Dosage: UNK
     Route: 064
  7. NEORAL [Concomitant]
     Active Substance: CYCLOSPORINE
     Indication: Impetigo herpetiformis
     Dosage: 100 MG EVERY 12 HR
     Route: 064
     Dates: start: 20200125, end: 20200213
  8. NEORAL [Concomitant]
     Active Substance: CYCLOSPORINE
     Dosage: 150 MG EVERY DAY
     Route: 064
  9. ALLEGRA [Concomitant]
     Active Substance: FEXOFENADINE HYDROCHLORIDE
     Indication: Product used for unknown indication
     Dosage: UNKNOWN DOSE
     Route: 064
  10. CHLORPHENIRAMINE MALEATE [Concomitant]
     Active Substance: CHLORPHENIRAMINE MALEATE
     Indication: Product used for unknown indication
     Dosage: UNKNOWN DOSE
     Route: 064
  11. LEVOTHYROXINE [Concomitant]
     Active Substance: LEVOTHYROXINE
     Indication: Product used for unknown indication
     Dosage: UNKNOWN DOSE
     Route: 064
  12. ADALIMUMAB [Concomitant]
     Active Substance: ADALIMUMAB
     Indication: Impetigo herpetiformis

REACTIONS (2)
  - Low birth weight baby [Unknown]
  - Maternal exposure during pregnancy [Unknown]

NARRATIVE: CASE EVENT DATE: 20200129
